FAERS Safety Report 9058307 (Version 2)
Quarter: 2012Q4

REPORT INFORMATION
  Report Type: 
  Country: BR (occurrence: BR)
  Receive Date: 20120928
  Receipt Date: 20121005
  Transmission Date: 20130627
  Serious: Yes (Death)
  Sender: FDA-Public Use
  Company Number: BR-BRACCO-000084

PATIENT
  Age: 65 Year
  Sex: Male

DRUGS (6)
  1. AMLODIPINA [Concomitant]
  2. ENALAPRIL MALEATE [Concomitant]
  3. CLONIDINA [Concomitant]
  4. SIMVASTATIN [Concomitant]
  5. IOPAMIRON [Suspect]
     Indication: PRODUCT USED FOR UNKNOWN INDICATION
     Route: 042
     Dates: start: 20120920, end: 20120920
  6. IOPAMIRON [Suspect]
     Indication: COMPUTERISED TOMOGRAM
     Route: 042
     Dates: start: 20120920, end: 20120920

REACTIONS (4)
  - Cardio-respiratory arrest [Fatal]
  - Bronchospasm [Fatal]
  - Dyspnoea [Fatal]
  - Cough [Fatal]
